FAERS Safety Report 22343719 (Version 2)
Quarter: 2023Q2

REPORT INFORMATION
  Report Type: Report from Study
  Country: CN (occurrence: CN)
  Receive Date: 20230519
  Receipt Date: 20230613
  Transmission Date: 20230721
  Serious: Yes (Hospitalization)
  Sender: FDA-Public Use
  Company Number: CN-HENLIUS-23CN009744

PATIENT
  Age: 42 Year
  Sex: Female
  Weight: 70.5 kg

DRUGS (5)
  1. DOCETAXEL [Suspect]
     Active Substance: DOCETAXEL
     Indication: Breast cancer
     Dosage: 135 MILLIGRAM, Q3W, IV DRIP
     Route: 042
     Dates: start: 20230210, end: 20230418
  2. TRASTUZUMAB [Suspect]
     Active Substance: TRASTUZUMAB
     Indication: Breast cancer
     Dosage: STRENGTH: 150 MG, 564 MG, Q3W, IV DRIP
     Route: 042
     Dates: start: 20230210, end: 20230210
  3. VITAMIN C [Concomitant]
     Active Substance: ASCORBIC ACID
     Indication: Fluid replacement
     Dosage: 2 GRAM, QD, IVGTT
     Dates: start: 20230406, end: 20230505
  4. VITAMIN B6 [Concomitant]
     Active Substance: PYRIDOXINE HYDROCHLORIDE
     Indication: Fluid replacement
     Dosage: 4 MILLILITER, QD, IVGTT
     Dates: start: 20230406, end: 20230505
  5. TRASTUZUMAB [Suspect]
     Active Substance: TRASTUZUMAB
     Indication: Breast cancer
     Dosage: STRENGTH: 150 MG, 423 MG, Q3W, IV DRIP
     Route: 042
     Dates: start: 20230307, end: 20230418

REACTIONS (1)
  - Hepatic function abnormal [Recovered/Resolved]

NARRATIVE: CASE EVENT DATE: 20230426
